FAERS Safety Report 20370504 (Version 2)
Quarter: 2022Q2

REPORT INFORMATION
  Report Type: Spontaneous
  Country: US (occurrence: US)
  Receive Date: 20220124
  Receipt Date: 20220414
  Transmission Date: 20220721
  Serious: Yes (Hospitalization, Other)
  Sender: FDA-Public Use
  Company Number: US-GLAXOSMITHKLINE-US2022GSK008811

PATIENT
  Sex: Male
  Weight: 106.58 kg

DRUGS (2)
  1. ZANTAC [Suspect]
     Active Substance: RANITIDINE HYDROCHLORIDE
     Indication: Gastrooesophageal reflux disease
     Dosage: UNK
     Route: 065
     Dates: start: 1983, end: 2019
  2. RANITIDINE HYDROCHLORIDE [Suspect]
     Active Substance: RANITIDINE HYDROCHLORIDE
     Indication: Product used for unknown indication
     Dosage: 300 MG
     Route: 065

REACTIONS (9)
  - Prostate cancer [Unknown]
  - Nephrolithiasis [Unknown]
  - Prostatic dysplasia [Unknown]
  - Prostatic atrophy [Unknown]
  - Prostatitis [Unknown]
  - Prostatomegaly [Unknown]
  - Prostatic cyst [Unknown]
  - Prostatic disorder [Unknown]
  - Prostatic mass [Unknown]
